FAERS Safety Report 7351878-3 (Version None)
Quarter: 2011Q1

REPORT INFORMATION
  Report Type: 
  Country: None (occurrence: None)
  Receive Date: 20110315
  Receipt Date: 20110223
  Transmission Date: 20110831
  Serious: Yes (Hospitalization)
  Sender: FDA-Public Use
  Company Number: US-BAYER-201023634NA

PATIENT
  Sex: Female
  Weight: 86.168 kg

DRUGS (5)
  1. YAZ [Suspect]
     Indication: CONTRACEPTION
     Route: 048
     Dates: start: 20071101, end: 20080530
  2. YASMIN [Suspect]
     Indication: PREMENSTRUAL SYNDROME
  3. YAZ [Suspect]
     Indication: ACNE
     Dosage: UNK
     Dates: start: 20070725, end: 20080530
  4. WELLBUTRIN XL [Concomitant]
     Dosage: 150 MG, QD
     Route: 048
     Dates: start: 20080601
  5. YAZ [Suspect]
     Indication: PREMENSTRUAL SYNDROME
     Dosage: UNK
     Dates: start: 20070825, end: 20080425

REACTIONS (7)
  - MUSCLE SPASMS [None]
  - PULMONARY EMBOLISM [None]
  - PAINFUL RESPIRATION [None]
  - DYSPNOEA [None]
  - ABDOMINAL PAIN [None]
  - MENORRHAGIA [None]
  - PLEURITIC PAIN [None]
